FAERS Safety Report 16407480 (Version 1)
Quarter: 2019Q2

REPORT INFORMATION
  Report Type: Spontaneous
  Country: ES (occurrence: ES)
  Receive Date: 20190608
  Receipt Date: 20190608
  Transmission Date: 20190711
  Serious: Yes (Hospitalization)
  Sender: FDA-Public Use
  Company Number: PHHY2019ES128187

PATIENT
  Age: 63 Year
  Sex: Female

DRUGS (5)
  1. LOSARTAN. [Concomitant]
     Active Substance: LOSARTAN
     Indication: HYPERTENSION
     Route: 065
  2. AMILORIDE [Concomitant]
     Active Substance: AMILORIDE
     Indication: HYPERTENSION
     Route: 065
  3. VERAPAMIL [Concomitant]
     Active Substance: VERAPAMIL HYDROCHLORIDE
     Indication: HYPERTENSION
     Route: 065
  4. CHLORTALIDONE [Concomitant]
     Active Substance: CHLORTHALIDONE
     Indication: HYPERTENSION
     Route: 065
  5. HYDROCHLOROTHIAZIDE. [Suspect]
     Active Substance: HYDROCHLOROTHIAZIDE
     Indication: HYPERTENSION
     Route: 065

REACTIONS (7)
  - Malaise [Recovering/Resolving]
  - Pyrexia [Recovering/Resolving]
  - Chills [Recovering/Resolving]
  - Nausea [Recovering/Resolving]
  - Vomiting [Recovering/Resolving]
  - Leukopenia [Recovering/Resolving]
  - Back pain [Recovering/Resolving]
